FAERS Safety Report 21753013 (Version 1)
Quarter: 2022Q4

REPORT INFORMATION
  Report Type: Spontaneous
  Country: JP (occurrence: JP)
  Receive Date: 20221220
  Receipt Date: 20221220
  Transmission Date: 20230112
  Serious: Yes (Hospitalization, Other)
  Sender: FDA-Public Use
  Company Number: JP-GSKNCCC-Case-01607931_AE-64166

PATIENT

DRUGS (1)
  1. SERETIDE [Suspect]
     Active Substance: FLUTICASONE PROPIONATE\SALMETEROL XINAFOATE
     Dosage: UNK, 6 INHALATIONS AT A TIME
     Route: 055

REACTIONS (4)
  - Ascites [Unknown]
  - Renal impairment [Unknown]
  - Overdose [Unknown]
  - Drug ineffective [Unknown]
